FAERS Safety Report 16938023 (Version 1)
Quarter: 2019Q4

REPORT INFORMATION
  Report Type: Spontaneous
  Country: CA (occurrence: CA)
  Receive Date: 20191019
  Receipt Date: 20191019
  Transmission Date: 20200122
  Serious: Yes (Hospitalization)
  Sender: FDA-Public Use
  Company Number: CA-ACCORD-158120

PATIENT
  Age: 9 Year
  Sex: Male
  Weight: 29 kg

DRUGS (15)
  1. HYDROCORTISONE. [Concomitant]
     Active Substance: HYDROCORTISONE
  2. CARBOPLATIN. [Suspect]
     Active Substance: CARBOPLATIN
     Indication: NEOPLASM
     Route: 042
  3. IFOSFAMIDE. [Suspect]
     Active Substance: IFOSFAMIDE
     Indication: NEOPLASM
     Dosage: POWDER FOR SOLUTION INTRAVENOUS INJECTION, USP
     Route: 042
  4. ETOPOSIDE. [Suspect]
     Active Substance: ETOPOSIDE
     Indication: NEOPLASM
     Route: 042
  5. PARACETAMOL [Concomitant]
     Active Substance: ACETAMINOPHEN
  6. MESNA. [Concomitant]
     Active Substance: MESNA
  7. NEUPOGEN [Concomitant]
     Active Substance: FILGRASTIM
  8. HEPARIN [Concomitant]
     Active Substance: HEPARIN SODIUM
  9. ONDANSETRON [Concomitant]
     Active Substance: ONDANSETRON
  10. DIMENHYDRINATE. [Concomitant]
     Active Substance: DIMENHYDRINATE
  11. PENTAMIDINE/PENTAMIDINE DIMESILATE/PENTAMIDINE ISETHIONATE [Concomitant]
     Dosage: STRENGTH 300 MG/VIAL BP INJ
  12. VANCOMYCIN [Concomitant]
     Active Substance: VANCOMYCIN
  13. DEXAMETHASONE. [Concomitant]
     Active Substance: DEXAMETHASONE
  14. DIPHENHYDRAMINE. [Concomitant]
     Active Substance: DIPHENHYDRAMINE
  15. METOCLOPRAMIDE. [Concomitant]
     Active Substance: METOCLOPRAMIDE

REACTIONS (2)
  - Febrile neutropenia [Recovering/Resolving]
  - Pancytopenia [Recovering/Resolving]
